FAERS Safety Report 23473875 (Version 4)
Quarter: 2024Q2

REPORT INFORMATION
  Report Type: Report from Study
  Country: CA (occurrence: CA)
  Receive Date: 20240203
  Receipt Date: 20240409
  Transmission Date: 20240717
  Serious: Yes (Other)
  Sender: FDA-Public Use
  Company Number: CA-JNJFOC-20240115941

PATIENT
  Age: 67 Year
  Sex: Female

DRUGS (2)
  1. STELARA [Suspect]
     Active Substance: USTEKINUMAB
     Indication: Colitis ulcerative
     Route: 058
     Dates: start: 20231005
  2. STELARA [Suspect]
     Active Substance: USTEKINUMAB
     Route: 058

REACTIONS (9)
  - Colitis ulcerative [Unknown]
  - Urinary tract infection [Unknown]
  - Needle issue [Unknown]
  - Vulvovaginal dryness [Unknown]
  - Frequent bowel movements [Unknown]
  - Faeces soft [Unknown]
  - Inappropriate schedule of product administration [Unknown]
  - Product leakage [Unknown]
  - Off label use [Unknown]

NARRATIVE: CASE EVENT DATE: 20240105
